FAERS Safety Report 9319687 (Version 1)
Quarter: 2013Q2

REPORT INFORMATION
  Report Type: Report from Study
  Country: US (occurrence: US)
  Receive Date: 20130530
  Receipt Date: 20130530
  Transmission Date: 20140414
  Serious: Yes (Hospitalization)
  Sender: FDA-Public Use
  Company Number: US-JNJFOC-20130516560

PATIENT
  Sex: Female

DRUGS (7)
  1. SIMPONI [Suspect]
     Indication: PSORIATIC ARTHROPATHY
     Route: 058
     Dates: start: 20130518
  2. SIMPONI [Suspect]
     Indication: PSORIATIC ARTHROPATHY
     Route: 058
     Dates: start: 2010, end: 201112
  3. FEMARA [Concomitant]
     Indication: AROMATASE INHIBITION THERAPY
     Route: 048
     Dates: start: 201210
  4. UNSPECIFIED MEDICATION FOR HYPOTHYROIDISM [Concomitant]
     Indication: HYPOTHYROIDISM
     Route: 048
  5. ANTI-INFLAMMATORY MEDICATION [Concomitant]
     Indication: ANTIINFLAMMATORY THERAPY
     Route: 048
     Dates: start: 2012
  6. VITAMIN D [Concomitant]
     Route: 048
     Dates: start: 201210
  7. CALCIUM [Concomitant]
     Route: 048

REACTIONS (4)
  - Breast cancer [Unknown]
  - Post procedural infection [Recovered/Resolved]
  - Sepsis [Recovered/Resolved]
  - Respiratory tract infection [Recovered/Resolved]
